FAERS Safety Report 7432007-4 (Version None)
Quarter: 2011Q2

REPORT INFORMATION
  Report Type: 
  Country: None (occurrence: None)
  Receive Date: 20110422
  Receipt Date: 20110418
  Transmission Date: 20111010
  Serious: Yes (Other)
  Sender: FDA-Public Use
  Company Number: US-AMGEN-USASP2011020400

PATIENT
  Age: 83 Year
  Sex: Female

DRUGS (2)
  1. NPLATE [Suspect]
     Indication: THROMBOCYTOPENIA
     Dates: start: 20110131
  2. CORTICOSTEROIDS [Concomitant]
     Dosage: UNK
     Dates: start: 20110116

REACTIONS (2)
  - THROMBOCYTOPENIC PURPURA [None]
  - DRUG INEFFECTIVE [None]
